FAERS Safety Report 6603348-5 (Version None)
Quarter: 2010Q1

REPORT INFORMATION
  Report Type: 
  Country: None (occurrence: None)
  Receive Date: 20100226
  Receipt Date: 20090219
  Transmission Date: 20100710
  Serious: No
  Sender: FDA-Public Use
  Company Number: A0769535A

PATIENT
  Age: 51 Year
  Sex: Female

DRUGS (6)
  1. VALTREX [Suspect]
     Indication: GENITAL HERPES
     Dosage: 500MG PER DAY
     Route: 048
     Dates: start: 19980101, end: 20090215
  2. THYROID TAB [Concomitant]
  3. CELEXA [Concomitant]
  4. PROGESTERONE [Concomitant]
  5. BIESTROGEN [Concomitant]
  6. CLARINEX [Concomitant]

REACTIONS (2)
  - ALOPECIA [None]
  - PRURITUS [None]
